FAERS Safety Report 11323456 (Version 1)
Quarter: 2015Q3

REPORT INFORMATION
  Report Type: Spontaneous
  Country: None (occurrence: None)
  Receive Date: 20150729
  Receipt Date: 20150729
  Transmission Date: 20151125
  Serious: No
  Sender: FDA-Public Use
  Company Number: None

PATIENT
  Age: 44 Year
  Sex: Male
  Weight: 96.16 kg

DRUGS (1)
  1. AMPHETAMINE-DEXTROAMPHET 20 MG ACTAVIS [Suspect]
     Active Substance: AMPHETAMINE\DEXTROAMPHETAMINE
     Indication: ATTENTION DEFICIT/HYPERACTIVITY DISORDER
     Route: 048
     Dates: start: 20150728, end: 20150728

REACTIONS (9)
  - Drug effect delayed [None]
  - Somnolence [None]
  - Condition aggravated [None]
  - Product formulation issue [None]
  - Product quality issue [None]
  - Dizziness [None]
  - Attention deficit/hyperactivity disorder [None]
  - Head discomfort [None]
  - Product substitution issue [None]

NARRATIVE: CASE EVENT DATE: 20150728
